FAERS Safety Report 6788385-2 (Version None)
Quarter: 2010Q2

REPORT INFORMATION
  Report Type: 
  Country: None (occurrence: None)
  Receive Date: 20100623
  Receipt Date: 20080222
  Transmission Date: 20101027
  Serious: No
  Sender: FDA-Public Use
  Company Number: US-PFIZER INC-2008018882

PATIENT
  Sex: Male
  Weight: 88.2 kg

DRUGS (4)
  1. COLESTID [Suspect]
     Indication: BLOOD CHOLESTEROL INCREASED
     Route: 048
     Dates: end: 20080220
  2. PROPRANOLOL [Concomitant]
  3. NEURONTIN [Concomitant]
  4. CHOLESTYRAMINE [Concomitant]

REACTIONS (5)
  - ABDOMINAL DISTENSION [None]
  - ABDOMINAL PAIN [None]
  - BACK PAIN [None]
  - BLOOD CHOLESTEROL INCREASED [None]
  - CONSTIPATION [None]
